FAERS Safety Report 25374709 (Version 1)
Quarter: 2025Q2

REPORT INFORMATION
  Report Type: Spontaneous
  Country: US (occurrence: None)
  Receive Date: 20250528
  Receipt Date: 20250528
  Transmission Date: 20250716
  Serious: Yes (Other)
  Sender: FDA-CTU
  Company Number: None

PATIENT
  Age: 25 Year
  Sex: Female
  Weight: 49.5 kg

DRUGS (1)
  1. TIRZEPATIDE [Suspect]
     Active Substance: TIRZEPATIDE
     Dates: start: 20250501, end: 20250525

REACTIONS (3)
  - Product compounding quality issue [None]
  - Product advertising issue [None]
  - Victim of crime [None]

NARRATIVE: CASE EVENT DATE: 20250525
